FAERS Safety Report 6141235-X (Version None)
Quarter: 2009Q1

REPORT INFORMATION
  Report Type: 
  Country: None (occurrence: None)
  Receive Date: 20090330
  Receipt Date: 20090330
  Transmission Date: 20090719
  Serious: Yes (Other)
  Sender: FDA-Public Use
  Company Number: None

PATIENT
  Age: 35 Year
  Sex: Female
  Weight: 56.6996 kg

DRUGS (1)
  1. FENTANYL [Suspect]
     Indication: PAIN
     Dosage: 25 MCG/HR. NEW PATCH EACH 72HR TRANSDERMAL
     Route: 062
     Dates: start: 20081001, end: 20081020

REACTIONS (4)
  - APPLICATION SITE ERYTHEMA [None]
  - APPLICATION SITE RASH [None]
  - PRODUCT QUALITY ISSUE [None]
  - REACTION TO DRUG EXCIPIENTS [None]
